FAERS Safety Report 7493056-3 (Version None)
Quarter: 2011Q2

REPORT INFORMATION
  Report Type: 
  Country: None (occurrence: None)
  Receive Date: 20110520
  Receipt Date: 20110516
  Transmission Date: 20111010
  Serious: Yes (Other)
  Sender: FDA-Public Use
  Company Number: US-PFIZER INC-2011044392

PATIENT
  Sex: Female

DRUGS (5)
  1. CHANTIX [Suspect]
     Indication: SMOKING CESSATION THERAPY
     Dosage: STARTER MONTH PACK AND CONTINUOUS MONTH PACK
     Dates: start: 20070701, end: 20070901
  2. HYDROCODONE [Concomitant]
     Indication: ANKLE FRACTURE
     Dosage: UNK
     Dates: start: 20030101, end: 20090101
  3. IBUPROFEN [Concomitant]
     Indication: ANALGESIC THERAPY
     Dosage: UNK
     Dates: start: 20030101, end: 20080101
  4. LISINOPRIL [Concomitant]
     Indication: HYPERTENSION
     Dosage: UNK
     Dates: start: 20050101
  5. IBUPROFEN [Concomitant]
     Indication: ROTATOR CUFF SYNDROME

REACTIONS (5)
  - DEPRESSION [None]
  - AGGRESSION [None]
  - AMNESIA [None]
  - SUICIDAL IDEATION [None]
  - MOOD SWINGS [None]
